FAERS Safety Report 8893416 (Version 2)
Quarter: 2012Q4

REPORT INFORMATION
  Report Type: 
  Country: CH (occurrence: CH)
  Receive Date: 20121108
  Receipt Date: 20121205
  Transmission Date: 20130627
  Serious: Yes (Hospitalization, Other)
  Sender: FDA-Public Use
  Company Number: PHHY2012CH100500

PATIENT
  Age: 64 Year
  Sex: Female
  Weight: 89 kg

DRUGS (5)
  1. ACLASTA [Suspect]
     Indication: OSTEOPOROSIS
     Dosage: 5 mg
     Route: 042
     Dates: start: 20121001
  2. CALCIMAGON D3 [Concomitant]
     Dosage: UNK UKN, BID
     Route: 048
     Dates: start: 20120918
  3. CALCIMAGON D3 [Concomitant]
     Dates: start: 20121008, end: 20121012
  4. VIT D3 [Concomitant]
     Dosage: 20000
     Route: 048
     Dates: start: 20121001
  5. INDAPAMID [Concomitant]
     Dosage: 2.5

REACTIONS (23)
  - Fall [Recovering/Resolving]
  - Metabolic alkalosis [Recovering/Resolving]
  - Craniocerebral injury [Recovering/Resolving]
  - Headache [Not Recovered/Not Resolved]
  - Memory impairment [Not Recovered/Not Resolved]
  - Vertigo [Not Recovered/Not Resolved]
  - Hyperparathyroidism secondary [Recovering/Resolving]
  - Hypovitaminosis [Recovering/Resolving]
  - Hypocalcaemia [Recovering/Resolving]
  - Trousseau^s sign [Recovering/Resolving]
  - Blood phosphorus decreased [Unknown]
  - Syncope [Unknown]
  - Loss of consciousness [Unknown]
  - Hypertension [Unknown]
  - Electrocardiogram QT prolonged [Unknown]
  - Central obesity [Unknown]
  - Head injury [Unknown]
  - Areflexia [Unknown]
  - Myalgia [Recovering/Resolving]
  - Malaise [Recovering/Resolving]
  - Pyrexia [Recovering/Resolving]
  - Paraesthesia [Unknown]
  - Muscle spasms [Unknown]
